FAERS Safety Report 8455134-1 (Version None)
Quarter: 2012Q2

REPORT INFORMATION
  Report Type: 
  Country: None (occurrence: None)
  Receive Date: 20120621
  Receipt Date: 20120614
  Transmission Date: 20120825
  Serious: Yes (Other)
  Sender: FDA-Public Use
  Company Number: BR-SANOFI-AVENTIS-2012SA032336

PATIENT
  Age: 40 Year
  Sex: Male
  Weight: 76 kg

DRUGS (5)
  1. ALLEGRA-D 12 HOUR [Suspect]
     Dosage: START DATE- JUL2008 OR AUG2008
     Route: 048
     Dates: start: 20080101
  2. ALLEGRA-D 12 HOUR [Suspect]
     Route: 048
  3. ALLEGRA-D 12 HOUR [Suspect]
     Route: 048
     Dates: end: 20120504
  4. BUDESONIDE [Concomitant]
     Indication: GENERAL PHYSICAL HEALTH DETERIORATION
     Route: 045
     Dates: start: 20110101
  5. ALLEGRA-D 12 HOUR [Suspect]
     Route: 048

REACTIONS (13)
  - DYSPHAGIA [None]
  - HALLUCINATION [None]
  - CHEST DISCOMFORT [None]
  - SUICIDAL IDEATION [None]
  - FALL [None]
  - DYSPNOEA [None]
  - VERTIGO [None]
  - NERVOUS SYSTEM DISORDER [None]
  - MEMORY IMPAIRMENT [None]
  - INSOMNIA [None]
  - DRY MOUTH [None]
  - EATING DISORDER [None]
  - THINKING ABNORMAL [None]
